FAERS Safety Report 19579802 (Version 2)
Quarter: 2024Q3

REPORT INFORMATION
  Report Type: Spontaneous
  Country: BG (occurrence: BG)
  Receive Date: 20210720
  Receipt Date: 20240904
  Transmission Date: 20241016
  Serious: Yes (Hospitalization)
  Sender: CELLTRION
  Company Number: BG-CELLTRION INC.-2021BG002350

PATIENT

DRUGS (13)
  1. HERCEPTIN [Suspect]
     Active Substance: TRASTUZUMAB
     Indication: Breast cancer metastatic
     Dosage: 450 MG, EVERY 3 WEEKS (FREQUENCY: Q3W - EVERY 3 WEEKS MOST RECENT 300 MG DOSE PRIOR TO THE EVENT: 27
     Route: 042
     Dates: start: 20191031, end: 20191031
  2. HERCEPTIN [Suspect]
     Active Substance: TRASTUZUMAB
     Indication: Breast cancer
     Dosage: 300 MG EVERY 3 WEEKS
     Route: 042
     Dates: start: 20191127
  3. TRASTUZUMAB [Suspect]
     Active Substance: TRASTUZUMAB
     Indication: Breast cancer metastatic
     Dosage: 450 MG, EVERY 3 WEEKS (FREQUENCY: Q3W - EVERY 3 WEEKS MOST RECENT 300 MG DOSE PRIOR TO THE EVENT: 27
     Route: 042
     Dates: start: 20191031, end: 20191031
  4. TRASTUZUMAB [Suspect]
     Active Substance: TRASTUZUMAB
     Indication: Breast cancer
     Dosage: 300 MG EVERY 3 WEEKS
     Route: 042
     Dates: start: 20191127
  5. DOCETAXEL [Suspect]
     Active Substance: DOCETAXEL\DOCETAXEL ANHYDROUS
     Indication: Breast cancer metastatic
     Dosage: 75 MG, EVERY 3 WEEKS
     Route: 042
     Dates: start: 20191031
  6. DOCETAXEL [Suspect]
     Active Substance: DOCETAXEL\DOCETAXEL ANHYDROUS
     Indication: Breast cancer
  7. ZOLEDRONIC ACID [Suspect]
     Active Substance: ZOLEDRONIC ACID
     Indication: Breast cancer
     Dosage: 4 MG EVERY 4 WEEKS
     Route: 042
     Dates: start: 20191114
  8. ZOLEDRONIC ACID [Suspect]
     Active Substance: ZOLEDRONIC ACID
     Indication: Breast cancer metastatic
  9. ENALAPRIL [Concomitant]
     Active Substance: ENALAPRIL
     Dosage: ONGOING = CHECKED
     Dates: start: 20091215
  10. ANALGIN (BULGARIA) [Concomitant]
     Dosage: ONGOING = NOT CHECKED
     Dates: start: 20191015, end: 20200824
  11. TRAMADOL [Concomitant]
     Active Substance: TRAMADOL\TRAMADOL HYDROCHLORIDE
     Dosage: ONGOING = CHECKED
     Dates: start: 20200824
  12. FILGRASTIM [Concomitant]
     Active Substance: FILGRASTIM
     Indication: Leukopenia
     Dosage: ONGOING = NOT CHECKED
     Dates: start: 20200709, end: 20200709
  13. ERYTHROPOIETIN [Concomitant]
     Active Substance: ERYTHROPOIETIN
     Indication: Anaemia
     Dosage: ONGOING = NOT CHECKED
     Dates: start: 20200710, end: 20200710

REACTIONS (2)
  - Anaemia [Recovered/Resolved with Sequelae]
  - Underdose [Unknown]

NARRATIVE: CASE EVENT DATE: 20200807
